FAERS Safety Report 5765503-6 (Version None)
Quarter: 2008Q2

REPORT INFORMATION
  Report Type: 
  Country: None (occurrence: None)
  Receive Date: 20080611
  Receipt Date: 20080609
  Transmission Date: 20081010
  Serious: Yes (Other)
  Sender: FDA-Public Use
  Company Number: D0057621A

PATIENT
  Age: 72 Year
  Sex: Male

DRUGS (1)
  1. ADARTREL [Suspect]
     Route: 048
     Dates: start: 20080606, end: 20080606

REACTIONS (3)
  - INTENTIONAL OVERDOSE [None]
  - SOPOR [None]
  - SUICIDE ATTEMPT [None]
